FAERS Safety Report 5145003-7 (Version None)
Quarter: 2006Q4

REPORT INFORMATION
  Report Type: 
  Country: None (occurrence: None)
  Receive Date: 20061031
  Receipt Date: 20061018
  Transmission Date: 20070319
  Serious: Yes (Hospitalization)
  Sender: FDA-Public Use
  Company Number: FABR-11710

PATIENT
  Age: 30 Year
  Sex: Male
  Weight: 70 kg

DRUGS (1)
  1. FABRAZYME [Suspect]
     Indication: FABRY'S DISEASE
     Dosage: 70 MG Q2WKS IV
     Route: 042
     Dates: start: 20050110

REACTIONS (5)
  - DIALYSIS [None]
  - DRUG DOSE OMISSION [None]
  - PANCREATITIS [None]
  - RENAL FAILURE [None]
  - TREATMENT NONCOMPLIANCE [None]
